FAERS Safety Report 21506979 (Version 1)
Quarter: 2022Q4

REPORT INFORMATION
  Report Type: Spontaneous
  Country: US (occurrence: None)
  Receive Date: 20221025
  Receipt Date: 20221025
  Transmission Date: 20230112
  Serious: Yes (Hospitalization)
  Sender: FDA-Public Use
  Company Number: None

PATIENT
  Sex: Female

DRUGS (1)
  1. PROLIA [Suspect]
     Active Substance: DENOSUMAB
     Indication: Thoracic vertebral fracture
     Dosage: OTHER FREQUENCY : EVERY 6 MONTHS;?
     Route: 058
     Dates: start: 202206

REACTIONS (6)
  - Fall [None]
  - Asthenia [None]
  - Dehydration [None]
  - Urinary tract infection [None]
  - Dysphonia [None]
  - Dysstasia [None]
